FAERS Safety Report 16438279 (Version 1)
Quarter: 2019Q2

REPORT INFORMATION
  Report Type: Spontaneous
  Country: HK (occurrence: HK)
  Receive Date: 20190617
  Receipt Date: 20190617
  Transmission Date: 20190711
  Serious: Yes (Life-Threatening, Hospitalization, Other)
  Sender: FDA-Public Use
  Company Number: HK-LUPIN PHARMACEUTICALS INC.-2019-03569

PATIENT
  Age: 59 Year
  Sex: Male

DRUGS (4)
  1. MEROPENEM. [Suspect]
     Active Substance: MEROPENEM
     Indication: OTITIS MEDIA CHRONIC
     Dosage: UNK
     Route: 065
  2. OFLOXACIN. [Suspect]
     Active Substance: OFLOXACIN
     Indication: OTITIS MEDIA CHRONIC
     Dosage: UNK
     Route: 001
  3. CIPROFLOXACIN. [Suspect]
     Active Substance: CIPROFLOXACIN
     Dosage: MULTIPLE COURSES
     Route: 065
  4. CIPROFLOXACIN. [Suspect]
     Active Substance: CIPROFLOXACIN
     Indication: OTITIS MEDIA CHRONIC
     Dosage: UNK
     Route: 048

REACTIONS (9)
  - Epistaxis [Unknown]
  - Facial paralysis [Not Recovered/Not Resolved]
  - Condition aggravated [Unknown]
  - Otitis externa [Unknown]
  - Vascular pseudoaneurysm [Unknown]
  - Otitis media chronic [Unknown]
  - Hypoglossal nerve paralysis [Unknown]
  - Otorrhoea [Unknown]
  - Trigeminal palsy [Unknown]
